FAERS Safety Report 15566328 (Version 1)
Quarter: 2018Q4

REPORT INFORMATION
  Report Type: Spontaneous
  Country: US (occurrence: US)
  Receive Date: 20181030
  Receipt Date: 20181030
  Transmission Date: 20190205
  Serious: Yes (Hospitalization)
  Sender: FDA-Public Use
  Company Number: None

PATIENT
  Sex: Male

DRUGS (4)
  1. TIVICAY [Suspect]
     Active Substance: DOLUTEGRAVIR SODIUM
     Route: 048
     Dates: start: 20170624
  2. HYDROCO/APAP 5-300MG [Concomitant]
  3. DESCOVY [Concomitant]
     Active Substance: EMTRICITABINE\TENOFOVIR ALAFENAMIDE FUMARATE
  4. ACYCLOVIR 800MG [Concomitant]
     Active Substance: ACYCLOVIR

REACTIONS (5)
  - Product dose omission [None]
  - Gait disturbance [None]
  - Therapy change [None]
  - Nausea [None]
  - Infection [None]
